FAERS Safety Report 6050660-7 (Version None)
Quarter: 2009Q1

REPORT INFORMATION
  Report Type: 
  Country: None (occurrence: None)
  Receive Date: 20090126
  Receipt Date: 20090119
  Transmission Date: 20090719
  Serious: Yes (Hospitalization)
  Sender: FDA-Public Use
  Company Number: FR-ELI_LILLY_AND_COMPANY-FR200901002865

PATIENT
  Sex: Female

DRUGS (9)
  1. HUMALOG MIX 75/25 [Suspect]
     Indication: TYPE 2 DIABETES MELLITUS
     Route: 058
  2. IKOREL [Concomitant]
     Dosage: 20 MG, DAILY (1/D)
     Route: 048
  3. APROVEL [Concomitant]
     Route: 048
  4. KARDEGIC [Concomitant]
     Route: 048
  5. FRACTAL [Concomitant]
     Route: 048
  6. ARIMIDEX [Concomitant]
     Route: 048
  7. LASILIX [Concomitant]
     Route: 048
  8. VENTOLIN [Concomitant]
  9. BUDESONIDE [Concomitant]

REACTIONS (3)
  - HYPOGLYCAEMIA [None]
  - RESPIRATORY FAILURE [None]
  - SKIN ULCER [None]
